FAERS Safety Report 11906212 (Version 2)
Quarter: 2016Q1

REPORT INFORMATION
  Report Type: Spontaneous
  Country: US (occurrence: US)
  Receive Date: 20160111
  Receipt Date: 20160114
  Transmission Date: 20160526
  Serious: No
  Sender: FDA-Public Use
  Company Number: US-BAYER-2016-005182

PATIENT
  Age: 53 Year
  Sex: Female
  Weight: 74.83 kg

DRUGS (1)
  1. MIRALAX [Suspect]
     Active Substance: POLYETHYLENE GLYCOL 3350
     Indication: BOWEL PREPARATION
     Dosage: 14 DF, ONCE
     Route: 048
     Dates: start: 20160108, end: 20160108

REACTIONS (2)
  - Intentional product use issue [None]
  - Product use issue [None]

NARRATIVE: CASE EVENT DATE: 20160108
